FAERS Safety Report 9293082 (Version 1)
Quarter: 2013Q2

REPORT INFORMATION
  Report Type: Spontaneous
  Country: US (occurrence: None)
  Receive Date: 20130515
  Receipt Date: 20130515
  Transmission Date: 20140414
  Serious: Yes (Hospitalization)
  Sender: FDA-Public Use
  Company Number: None

PATIENT
  Age: 56 Year
  Sex: Female

DRUGS (2)
  1. TARCEVA 150 MG GENENTECH [Suspect]
     Route: 048
     Dates: start: 20130323, end: 20130331
  2. TARCEVA [Suspect]
     Route: 048
     Dates: start: 20130501

REACTIONS (4)
  - Rash [None]
  - Pyrexia [None]
  - Stomatitis [None]
  - Hypotension [None]
